FAERS Safety Report 14385650 (Version 2)
Quarter: 2018Q2

REPORT INFORMATION
  Report Type: Spontaneous
  Country: US (occurrence: US)
  Receive Date: 20180115
  Receipt Date: 20180618
  Transmission Date: 20180711
  Serious: Yes (Other)
  Sender: FDA-Public Use
  Company Number: US-SA-2017SA012956

PATIENT
  Age: 30 Year
  Sex: Female
  Weight: 110.66 kg

DRUGS (5)
  1. TAXOTERE [Suspect]
     Active Substance: DOCETAXEL
     Indication: BREAST CANCER FEMALE
     Dosage: 160 MG, QCY
     Route: 051
     Dates: start: 20120316, end: 20120316
  2. PARAPLATIN [Concomitant]
     Active Substance: CARBOPLATIN
     Dosage: 50 MG
  3. TAXOTERE [Suspect]
     Active Substance: DOCETAXEL
     Dosage: 160 MG, QCY
     Route: 051
     Dates: start: 20121012, end: 20121012
  4. DOXORUBICIN [Concomitant]
     Active Substance: DOXORUBICIN
  5. DEXAMETHASONE. [Concomitant]
     Active Substance: DEXAMETHASONE
     Dosage: 20 MG

REACTIONS (6)
  - Alopecia [Recovering/Resolving]
  - Anxiety [Unknown]
  - Pain [Unknown]
  - Psychological trauma [Unknown]
  - Impaired quality of life [Unknown]
  - Emotional distress [Unknown]

NARRATIVE: CASE EVENT DATE: 201206
